FAERS Safety Report 20240103 (Version 1)
Quarter: 2021Q4

REPORT INFORMATION
  Report Type: Spontaneous
  Country: PT (occurrence: PT)
  Receive Date: 20211228
  Receipt Date: 20211228
  Transmission Date: 20220303
  Serious: Yes (Other)
  Sender: FDA-Public Use
  Company Number: PT-Accord-245849

PATIENT
  Age: 48 Year
  Sex: Female

DRUGS (29)
  1. DOXORUBICIN [Suspect]
     Active Substance: DOXORUBICIN
     Indication: Diffuse large B-cell lymphoma
     Dosage: R-CHOP (FIRST CYCLE), 50 % REDUCTION IN DOXORUBICIN AND VINCRISTINE
  2. DOXORUBICIN [Suspect]
     Active Substance: DOXORUBICIN
     Dosage: UNK (R-CHOP (SIXTH CYCLE), FULL DOSES)
  3. DOXORUBICIN [Suspect]
     Active Substance: DOXORUBICIN
     Dosage: UNK (R-CHOP (THIRD CYCLE), FULL DOSES)
  4. DOXORUBICIN [Suspect]
     Active Substance: DOXORUBICIN
     Dosage: UNK (R-CHOP (FIFTH CYCLE), FULL DOSES
  5. DOXORUBICIN [Suspect]
     Active Substance: DOXORUBICIN
     Dosage: R-CHOP (SECOND CYCLE) 100% DOXORUBICIN, 50% VINCRISTINE
  6. DOXORUBICIN [Suspect]
     Active Substance: DOXORUBICIN
     Dosage: UNK (R-CHOP (FOURTH CYCLE), FULL DOSES
  7. CYCLOPHOSPHAMIDE [Suspect]
     Active Substance: CYCLOPHOSPHAMIDE
     Indication: Diffuse large B-cell lymphoma
     Dosage: UNK (R-CVP (FIRST CYCLE)
  8. VINCRISTINE [Suspect]
     Active Substance: VINCRISTINE
     Indication: Diffuse large B-cell lymphoma
     Dosage: R-CHOP (FIRST CYCLE), 50 % REDUCTION IN DOXORUBICIN AND VINCRISTINE
  9. VINCRISTINE [Suspect]
     Active Substance: VINCRISTINE
     Dosage: R-CHOP (SECOND CYCLE) 100% DOXORUBICIN, 50% VINCRISTINE
  10. VINCRISTINE [Suspect]
     Active Substance: VINCRISTINE
     Dosage: UNK (R-CHOP (THIRD CYCLE), FULL DOSES)
  11. VINCRISTINE [Suspect]
     Active Substance: VINCRISTINE
     Dosage: UNK (R-CHOP (FOURTH CYCLE), FULL DOSES)
  12. VINCRISTINE [Suspect]
     Active Substance: VINCRISTINE
     Dosage: 1 GRAM, CYCLE (R-CHOP (FIFTH CYCLE)
  13. VINCRISTINE [Suspect]
     Active Substance: VINCRISTINE
     Dosage: 1 GRAM, CYCLE (R-CHOP (SIXTH CYCLE)
  14. RITUXIMAB [Suspect]
     Active Substance: RITUXIMAB
     Indication: Product used for unknown indication
     Dosage: UNK (R-CHOP (THIRD CYCLE)
  15. RITUXIMAB [Suspect]
     Active Substance: RITUXIMAB
     Dosage: UNK (R-CHOP (FIRST CYCLE)
  16. RITUXIMAB [Suspect]
     Active Substance: RITUXIMAB
     Dosage: UNK (R-CVP (FIRST CYCLE)
  17. RITUXIMAB [Suspect]
     Active Substance: RITUXIMAB
     Dosage: UNK (R-CHOP (SECOND CYCLE)
  18. RITUXIMAB [Suspect]
     Active Substance: RITUXIMAB
     Dosage: UNK (R-CHOP (FIFTH CYCLE)
  19. RITUXIMAB [Suspect]
     Active Substance: RITUXIMAB
     Dosage: UNK (R-CHOP (FOURTH CYCLE)
  20. RITUXIMAB [Suspect]
     Active Substance: RITUXIMAB
     Dosage: UNK (R-CHOP (SIXTH CYCLE)
  21. PREDNISOLONE [Suspect]
     Active Substance: PREDNISOLONE
     Indication: Diffuse large B-cell lymphoma
     Dosage: UNK (R-CHOP (THIRD CYCLE)
  22. PREDNISOLONE [Suspect]
     Active Substance: PREDNISOLONE
     Dosage: UNK (R-CVP (FIRST CYCLE)
  23. PREDNISOLONE [Suspect]
     Active Substance: PREDNISOLONE
     Dosage: 60 MG/DAY FOR EIGHT DAYS
  24. PREDNISOLONE [Suspect]
     Active Substance: PREDNISOLONE
     Dosage: UNK (R-CHOP (FIFTH CYCLE)
  25. PREDNISOLONE [Suspect]
     Active Substance: PREDNISOLONE
     Dosage: UNK (R-CHOP (SECOND CYCLE)
  26. PREDNISOLONE [Suspect]
     Active Substance: PREDNISOLONE
     Dosage: UNK (R-CHOP (FOURTH CYCLE)
  27. PREDNISOLONE [Suspect]
     Active Substance: PREDNISOLONE
     Dosage: UNK (R-CHOP (FIRST CYCLE)
  28. PREDNISOLONE [Suspect]
     Active Substance: PREDNISOLONE
     Dosage: UNK (R-CHOP (SIXTH CYCLE)
  29. VINCRISTINE SULFATE [Suspect]
     Active Substance: VINCRISTINE SULFATE
     Indication: Diffuse large B-cell lymphoma
     Dosage: UNK (R-CVP (FIRST CYCLE)

REACTIONS (6)
  - Neuropathy peripheral [Unknown]
  - Disease progression [Unknown]
  - Thrombocytopenia [Unknown]
  - Diffuse large B-cell lymphoma [Unknown]
  - Leukopenia [Unknown]
  - Anaemia [Unknown]
